FAERS Safety Report 4667197-X (Version None)
Quarter: 2005Q2

REPORT INFORMATION
  Report Type: 
  Country: None (occurrence: None)
  Receive Date: 20050520
  Receipt Date: 20040527
  Transmission Date: 20051028
  Serious: No
  Sender: FDA-Public Use
  Company Number: US-BRISTOL-MYERS SQUIBB COMPANY-12598421

PATIENT
  Age: 57 Year
  Sex: Female
  Weight: 36 kg

DRUGS (7)
  1. SINEMET [Suspect]
     Indication: PARKINSON'S DISEASE
     Route: 048
  2. LIBRIUM [Concomitant]
  3. PROZAC [Concomitant]
  4. XANAX [Concomitant]
  5. PREDNISONE TAB [Concomitant]
  6. BEXTRA [Concomitant]
  7. KLONOPIN [Concomitant]

REACTIONS (2)
  - RASH GENERALISED [None]
  - SWELLING FACE [None]
